FAERS Safety Report 21094225 (Version 1)
Quarter: 2022Q3

REPORT INFORMATION
  Report Type: Spontaneous
  Country: IT (occurrence: IT)
  Receive Date: 20220718
  Receipt Date: 20220718
  Transmission Date: 20221027
  Serious: Yes (Other)
  Sender: FDA-Public Use
  Company Number: IT-drreddys-LIT/ITL/22/0151551

PATIENT
  Age: 77 Year
  Sex: Male

DRUGS (5)
  1. SORAFENIB [Suspect]
     Active Substance: SORAFENIB
     Indication: Papillary thyroid cancer
     Dosage: TWO TABLETS OF 200MG IN THE MORNING AND TWO TABLETS OF 200MG AT NIGHT DAILY
     Dates: start: 202105
  2. SORAFENIB [Suspect]
     Active Substance: SORAFENIB
     Indication: Thyroid cancer
     Dosage: THE DOSE OF SORAFENIB WAS REDUCED TO THREE TABLETS PER DAY
  3. SORAFENIB [Suspect]
     Active Substance: SORAFENIB
     Dosage: THREE TABLETS A DAY ON ONE WEEK AND TWO TABLETS A DAY ON THE NEXT WEEK
  4. DENOSUMAB [Suspect]
     Active Substance: DENOSUMAB
     Indication: Papillary thyroid cancer
  5. DENOSUMAB [Suspect]
     Active Substance: DENOSUMAB
     Indication: Thyroid cancer

REACTIONS (4)
  - Thrombocytopenia [Unknown]
  - Palmar-plantar erythrodysaesthesia syndrome [Unknown]
  - Mucosal inflammation [Unknown]
  - Off label use [Unknown]

NARRATIVE: CASE EVENT DATE: 20210801
